FAERS Safety Report 8556068-4 (Version None)
Quarter: 2012Q3

REPORT INFORMATION
  Report Type: 
  Country: None (occurrence: None)
  Receive Date: 20120719
  Receipt Date: 20120704
  Transmission Date: 20120928
  Serious: Yes (Life-Threatening, Hospitalization)
  Sender: FDA-Public Use
  Company Number: MCA-N-12-081

PATIENT
  Age: 18 Year
  Sex: Male

DRUGS (3)
  1. FLUNARIZINE [Concomitant]
  2. HYDROCHLOROTHIAZDE TAB [Concomitant]
  3. AMLODIPINE [Suspect]
     Dosage: 150 MG, ORAL
     Route: 048

REACTIONS (19)
  - DIZZINESS [None]
  - BRADYCARDIA [None]
  - ELECTROCARDIOGRAM P WAVE ABNORMAL [None]
  - BUNDLE BRANCH BLOCK LEFT [None]
  - ANURIA [None]
  - HYPERGLYCAEMIA [None]
  - SUICIDE ATTEMPT [None]
  - HYPOTENSION [None]
  - TOXICITY TO VARIOUS AGENTS [None]
  - HEADACHE [None]
  - ATRIOVENTRICULAR BLOCK [None]
  - PULMONARY CONGESTION [None]
  - ELECTROCARDIOGRAM ST SEGMENT DEPRESSION [None]
  - ELECTROCARDIOGRAM PR PROLONGATION [None]
  - PARAESTHESIA [None]
  - ACUTE PULMONARY OEDEMA [None]
  - VERTIGO [None]
  - TACHYPNOEA [None]
  - OXYGEN SATURATION DECREASED [None]
